FAERS Safety Report 9208151 (Version 1)
Quarter: 2013Q2

REPORT INFORMATION
  Report Type: Spontaneous
  Country: DE (occurrence: DE)
  Receive Date: 20130403
  Receipt Date: 20130403
  Transmission Date: 20140414
  Serious: Yes (Hospitalization)
  Sender: FDA-Public Use
  Company Number: GXKR2013DE001290

PATIENT
  Age: 28 Year
  Sex: Female
  Weight: 62 kg

DRUGS (8)
  1. DOXEPIN [Suspect]
     Dosage: 5 MG, BID
     Route: 048
     Dates: start: 200507
  2. DOXEPIN [Suspect]
     Dosage: 2.5 MG, BID
  3. RISPERDAL [Suspect]
     Dosage: 0.5 MG - 0 - 1 MG
     Route: 048
     Dates: start: 200806
  4. RISPERDAL [Suspect]
     Dosage: 0.5 MG - 0 - 0.75 MG
     Route: 048
  5. ORFIRIL [Concomitant]
     Dosage: 900 MG, BID
     Route: 048
     Dates: start: 200507
  6. VERAGAMMA [Concomitant]
     Dosage: 40 MG, QD
     Route: 048
     Dates: start: 200812
  7. PETNIDAN [Concomitant]
     Dosage: 500-0-750
     Route: 048
     Dates: start: 200507
  8. L THYROXIN [Concomitant]
     Dosage: 50 UG, QD
     Route: 048
     Dates: start: 201012

REACTIONS (1)
  - Aggression [Unknown]
